FAERS Safety Report 9512178 (Version 3)
Quarter: 2013Q4

REPORT INFORMATION
  Report Type: Spontaneous
  Country: ES (occurrence: ES)
  Receive Date: 20130910
  Receipt Date: 20131004
  Transmission Date: 20140711
  Serious: Yes (Other)
  Sender: FDA-Public Use
  Company Number: ES-ELI_LILLY_AND_COMPANY-ES201309000727

PATIENT
  Age: 71 Year
  Sex: Female

DRUGS (2)
  1. FORSTEO [Suspect]
     Indication: OSTEOPOROSIS
     Dosage: 20 UG, QD
     Route: 058
     Dates: start: 20130408, end: 20130622
  2. RYTMONORM [Concomitant]
     Dosage: 150 MG, TID

REACTIONS (1)
  - Neutropenia [Recovered/Resolved]
